FAERS Safety Report 7792121-0 (Version None)
Quarter: 2011Q4

REPORT INFORMATION
  Report Type: 
  Country: None (occurrence: None)
  Receive Date: 20111003
  Receipt Date: 20110922
  Transmission Date: 20120403
  Serious: Yes (Other)
  Sender: FDA-Public Use
  Company Number: AR-SANOFI-AVENTIS-2011SA018418

PATIENT
  Age: 66 Year
  Sex: Female

DRUGS (13)
  1. CARVEDILOL [Concomitant]
  2. INSULIN [Concomitant]
     Route: 058
  3. DRONEDARONE HCL [Suspect]
     Indication: ATRIAL FIBRILLATION
     Route: 048
     Dates: start: 20110322, end: 20110324
  4. FUROSEMIDE [Concomitant]
  5. DIGOXIN [Concomitant]
  6. ASPIRIN [Concomitant]
     Route: 048
  7. LEVOTHYROXINE [Concomitant]
  8. SINTROM [Concomitant]
     Dosage: 14 MG WEEKLY
     Route: 048
  9. RANITIDINA [Concomitant]
  10. ENALAPRIL MALEATE [Concomitant]
  11. SIMVASTATIN [Concomitant]
  12. CLOPIDOGREL [Concomitant]
  13. ESPIRONOLACTONA [Concomitant]

REACTIONS (1)
  - RENAL FAILURE ACUTE [None]
